FAERS Safety Report 23296934 (Version 1)
Quarter: 2023Q4

REPORT INFORMATION
  Report Type: Spontaneous
  Country: PR (occurrence: US)
  Receive Date: 20231214
  Receipt Date: 20231214
  Transmission Date: 20240110
  Serious: Yes (Hospitalization)
  Sender: FDA-Public Use
  Company Number: PR-BIOGEN-2023BI01239857

PATIENT
  Sex: Male

DRUGS (1)
  1. SPINRAZA [Suspect]
     Active Substance: NUSINERSEN
     Indication: Spinal muscular atrophy
     Route: 050

REACTIONS (6)
  - Pneumonia mycoplasmal [Recovered/Resolved]
  - Nephrolithiasis [Recovered/Resolved]
  - Procedural vomiting [Recovered/Resolved]
  - Lung disorder [Unknown]
  - Scoliosis [Not Recovered/Not Resolved]
  - Post lumbar puncture syndrome [Recovered/Resolved]

NARRATIVE: CASE EVENT DATE: 20230101
